FAERS Safety Report 7260454-2 (Version None)
Quarter: 2011Q1

REPORT INFORMATION
  Report Type: 
  Country: None (occurrence: None)
  Receive Date: 20110130
  Receipt Date: 20101110
  Transmission Date: 20110831
  Serious: No
  Sender: FDA-Public Use
  Company Number: US-ABBOTT-10P-163-0684530-00

PATIENT
  Age: 49 Year
  Sex: Female

DRUGS (11)
  1. ACTONEL [Concomitant]
     Indication: OSTEOPOROSIS
  2. PREDNISONE [Concomitant]
     Indication: AUTOIMMUNE INNER EAR DISEASE
     Route: 048
  3. INDERAL [Concomitant]
     Indication: HEADACHE
     Route: 048
  4. SPIRONOLACTONE [Concomitant]
     Indication: INNER EAR DISORDER
  5. PREVACID [Concomitant]
     Indication: PRODUCT USED FOR UNKNOWN INDICATION
  6. MECLIZINE [Concomitant]
     Indication: DIZZINESS
     Dosage: 1 - 2A DAY AS NEEDED
  7. ZOFRAN [Concomitant]
     Indication: NAUSEA
     Route: 048
  8. FIORINAL [Concomitant]
     Indication: HEADACHE
  9. HUMIRA [Suspect]
     Indication: AUTOIMMUNE INNER EAR DISEASE
     Dates: start: 20101101
  10. CYMBALTA [Concomitant]
     Indication: HEADACHE
     Route: 048
  11. DIAZEPAM [Concomitant]
     Indication: DIZZINESS

REACTIONS (4)
  - RASH [None]
  - HEADACHE [None]
  - FUNGAL INFECTION [None]
  - NAUSEA [None]
